FAERS Safety Report 5758312-5 (Version None)
Quarter: 2008Q2

REPORT INFORMATION
  Report Type: 
  Country: None (occurrence: None)
  Receive Date: 20080604
  Receipt Date: 20080213
  Transmission Date: 20081010
  Serious: No
  Sender: FDA-Public Use
  Company Number: US-KINGPHARMUSA00001-K200800198

PATIENT

DRUGS (1)
  1. ATROPEN AUTO-INJECTOR [Suspect]
     Dosage: UNK, SINGLE
     Dates: start: 20080213, end: 20080213

REACTIONS (5)
  - ACCIDENTAL EXPOSURE [None]
  - DRY MOUTH [None]
  - HEART RATE INCREASED [None]
  - INJECTION SITE PAIN [None]
  - INJECTION SITE SWELLING [None]
